FAERS Safety Report 7230723-0 (Version None)
Quarter: 2011Q1

REPORT INFORMATION
  Report Type: 
  Country: None (occurrence: None)
  Receive Date: 20110118
  Receipt Date: 20110107
  Transmission Date: 20110831
  Serious: Yes (Hospitalization, Other)
  Sender: FDA-Public Use
  Company Number: US-BAYER-2010-006227

PATIENT
  Sex: Male

DRUGS (1)
  1. BETASERON [Suspect]
     Indication: PRODUCT USED FOR UNKNOWN INDICATION
     Dosage: 8 MIU QOD
     Route: 058
     Dates: start: 20100128, end: 20101212

REACTIONS (4)
  - DYSPEPSIA [None]
  - CORONARY ARTERY BYPASS [None]
  - MUSCULOSKELETAL PAIN [None]
  - FATIGUE [None]
